FAERS Safety Report 22400142 (Version 2)
Quarter: 2023Q2

REPORT INFORMATION
  Report Type: Report from Study
  Country: CN (occurrence: CN)
  Receive Date: 20230602
  Receipt Date: 20230615
  Transmission Date: 20230722
  Serious: Yes (Hospitalization)
  Sender: FDA-Public Use
  Company Number: CN-JNJFOC-20230563250

PATIENT
  Age: 55 Year
  Sex: Female
  Weight: 65 kg

DRUGS (9)
  1. AMIVANTAMAB [Suspect]
     Active Substance: AMIVANTAMAB
     Indication: Non-small cell lung cancer metastatic
     Route: 042
     Dates: start: 20220726, end: 20230516
  2. CARBOPLATIN [Concomitant]
     Active Substance: CARBOPLATIN
     Indication: Non-small cell lung cancer metastatic
     Route: 042
     Dates: start: 20220726, end: 20220929
  3. PEMETREXED [Concomitant]
     Active Substance: PEMETREXED
     Indication: Non-small cell lung cancer metastatic
     Route: 042
     Dates: start: 20220726, end: 20230516
  4. FOLIC ACID [Concomitant]
     Active Substance: FOLIC ACID
     Indication: Prophylaxis
     Route: 048
     Dates: start: 20220713
  5. ZUDAN [Concomitant]
     Indication: Prophylaxis
     Route: 048
     Dates: start: 20220728
  6. AESCUVEN FORTE [AESCULUS HIPPOCASTANUM EXTRACT] [Concomitant]
     Indication: Haemorrhoids
     Route: 048
     Dates: start: 20220907
  7. SODIUM HYALURONATE [Concomitant]
     Active Substance: HYALURONATE SODIUM
     Indication: Dermatitis acneiform
     Route: 047
     Dates: start: 20220923
  8. ACETAMINOPHEN [Concomitant]
     Active Substance: ACETAMINOPHEN
     Indication: Bone pain
     Route: 048
     Dates: start: 20230125
  9. RIVAROXABAN [Concomitant]
     Active Substance: RIVAROXABAN
     Indication: Fibrin D dimer increased
     Route: 048
     Dates: start: 20230309

REACTIONS (1)
  - Erysipelas [Not Recovered/Not Resolved]

NARRATIVE: CASE EVENT DATE: 20230525
